FAERS Safety Report 7972905-6 (Version None)
Quarter: 2011Q4

REPORT INFORMATION
  Report Type: 
  Country: None (occurrence: None)
  Receive Date: 20111213
  Receipt Date: 20111205
  Transmission Date: 20120403
  Serious: Yes (Other)
  Sender: FDA-Public Use
  Company Number: JP-ROCHE-760371

PATIENT
  Sex: Male
  Weight: 60 kg

DRUGS (3)
  1. TAGAMET [Concomitant]
     Route: 048
     Dates: start: 20110917
  2. XELODA [Suspect]
     Indication: COLON CANCER
     Dosage: DOSAGE IS UNCERTAIN, DRUG NAME REPORETD AS: XELODA 300.
     Route: 048
     Dates: start: 20101014, end: 20110120
  3. CLOSTRIDIUM BUTYRICUM [Concomitant]
     Route: 048
     Dates: start: 20100917

REACTIONS (1)
  - PNEUMONIA [None]
